FAERS Safety Report 11549987 (Version 2)
Quarter: 2015Q4

REPORT INFORMATION
  Report Type: Report from Study
  Country: AU (occurrence: AU)
  Receive Date: 20150924
  Receipt Date: 20151102
  Transmission Date: 20160304
  Serious: Yes (Hospitalization)
  Sender: FDA-Public Use
  Company Number: AU-ABBVIE-15P-008-1468260-00

PATIENT
  Age: 63 Year
  Sex: Male
  Weight: 77 kg

DRUGS (1)
  1. DUODOPA [Suspect]
     Active Substance: CARBIDOPA\LEVODOPA
     Indication: PARKINSON^S DISEASE
     Dosage: 16 HRS
     Route: 050

REACTIONS (1)
  - Hydrocele [Recovered/Resolved]

NARRATIVE: CASE EVENT DATE: 201501
